FAERS Safety Report 13269516 (Version 1)
Quarter: 2017Q1

REPORT INFORMATION
  Report Type: Spontaneous
  Country: SI (occurrence: SI)
  Receive Date: 20170224
  Receipt Date: 20170224
  Transmission Date: 20170428
  Serious: Yes (Other)
  Sender: FDA-Public Use
  Company Number: SI-BAYER-2017-023975

PATIENT
  Age: 71 Year
  Sex: Male

DRUGS (4)
  1. ASPIRIN PROTECT 100 MG [Suspect]
     Active Substance: ASPIRIN
     Indication: MYOCARDIAL INFARCTION
     Dosage: UNK
  2. ATORVASTATIN [Concomitant]
     Active Substance: ATORVASTATIN
  3. ENALAPRIL [Concomitant]
     Active Substance: ENALAPRIL
  4. DILATREND [Concomitant]
     Active Substance: CARVEDILOL

REACTIONS (7)
  - Pain in extremity [None]
  - Chronic gastritis [None]
  - Liver function test abnormal [None]
  - Venous thrombosis [None]
  - Gastrooesophageal reflux disease [None]
  - Peripheral swelling [None]
  - Thrombocytopenia [None]
